FAERS Safety Report 23983775 (Version 1)
Quarter: 2024Q2

REPORT INFORMATION
  Report Type: Spontaneous
  Country: US (occurrence: US)
  Receive Date: 20240618
  Receipt Date: 20240618
  Transmission Date: 20240716
  Serious: Yes (Hospitalization, Other)
  Sender: FDA-Public Use
  Company Number: US-ROCHE-3577318

PATIENT
  Age: 58 Year
  Sex: Female
  Weight: 68.9 kg

DRUGS (8)
  1. CAPECITABINE [Suspect]
     Active Substance: CAPECITABINE
     Indication: Triple negative breast cancer
     Dosage: BID?DAILY DOSE: 3000 MILLIGRAM
     Route: 048
     Dates: start: 20240524
  2. PEMBROLIZUMAB [Suspect]
     Active Substance: PEMBROLIZUMAB
     Indication: Triple negative breast cancer
     Route: 042
     Dates: start: 20240522, end: 20240522
  3. LOSARTAN [Concomitant]
     Active Substance: LOSARTAN
  4. HYDROCHLOROTHIAZIDE [Concomitant]
     Active Substance: HYDROCHLOROTHIAZIDE
  5. SERTRALINE [Concomitant]
     Active Substance: SERTRALINE HYDROCHLORIDE
     Indication: Depression
     Dosage: DAILY DOSE: 150 MILLIGRAM
     Dates: start: 20240522
  6. SERTRALINE [Concomitant]
     Active Substance: SERTRALINE HYDROCHLORIDE
     Indication: Anxiety
     Dosage: DAILY DOSE: 150 MILLIGRAM
     Dates: start: 20240522
  7. XANAX [Concomitant]
     Active Substance: ALPRAZOLAM
     Indication: Anxiety
     Dates: start: 20240603
  8. POTASSIUM CHLORIDE [Concomitant]
     Active Substance: POTASSIUM CHLORIDE
     Dates: start: 20240603

REACTIONS (7)
  - Hypotension [Not Recovered/Not Resolved]
  - Hypokalaemia [Unknown]
  - Anaemia [Unknown]
  - Hypoalbuminaemia [Unknown]
  - Blood alkaline phosphatase increased [Unknown]
  - Aspartate aminotransferase increased [Unknown]
  - Platelet count decreased [Unknown]

NARRATIVE: CASE EVENT DATE: 20240603
